FAERS Safety Report 6071387-1 (Version None)
Quarter: 2009Q1

REPORT INFORMATION
  Report Type: 
  Country: None (occurrence: None)
  Receive Date: 20090204
  Receipt Date: 20090127
  Transmission Date: 20090719
  Serious: Yes (Life-Threatening)
  Sender: FDA-Public Use
  Company Number: GXKR2009US01193

PATIENT
  Age: 30 Year
  Sex: Female

DRUGS (1)
  1. PROMETHAZINE [Suspect]

REACTIONS (2)
  - LIVER TRANSPLANT [None]
  - MIXED LIVER INJURY [None]
